FAERS Safety Report 15158256 (Version 4)
Quarter: 2020Q2

REPORT INFORMATION
  Report Type: Report from Study
  Country: CA (occurrence: CA)
  Receive Date: 20180718
  Receipt Date: 20200619
  Transmission Date: 20200713
  Serious: Yes (Other)
  Sender: FDA-Public Use
  Company Number: CA-ROCHE-2123260

PATIENT
  Age: 37 Year
  Sex: Female

DRUGS (2)
  1. OCREVUS [Suspect]
     Active Substance: OCRELIZUMAB
     Indication: RELAPSING-REMITTING MULTIPLE SCLEROSIS
     Dosage: 300MG DAY 1, 15 THEN 600MG Q 6MONTHS,?NEXT DATE OF TREATMENT: 16/AUG/2016
     Route: 042
     Dates: start: 20160801
  2. BLEXTEN [Concomitant]
     Active Substance: BILASTINE
     Route: 065

REACTIONS (22)
  - Diarrhoea [Recovered/Resolved]
  - Pruritus [Not Recovered/Not Resolved]
  - Headache [Recovered/Resolved]
  - Bursitis [Unknown]
  - Dizziness [Recovered/Resolved]
  - Rash [Recovered/Resolved]
  - Ovarian disorder [Recovered/Resolved]
  - Nasopharyngitis [Recovered/Resolved]
  - Inflammation [Unknown]
  - Insomnia [Recovered/Resolved]
  - Alopecia [Not Recovered/Not Resolved]
  - Infusion related reaction [Recovered/Resolved]
  - Uhthoff^s phenomenon [Not Recovered/Not Resolved]
  - Eczema [Recovered/Resolved]
  - Nasopharyngitis [Recovered/Resolved]
  - Erythema [Recovered/Resolved]
  - Bronchitis [Recovered/Resolved]
  - Tendonitis [Unknown]
  - Fatigue [Recovered/Resolved]
  - Food intolerance [Unknown]
  - Food allergy [Not Recovered/Not Resolved]
  - Drug intolerance [Not Recovered/Not Resolved]

NARRATIVE: CASE EVENT DATE: 201608
